FAERS Safety Report 24050542 (Version 1)
Quarter: 2024Q3

REPORT INFORMATION
  Report Type: Spontaneous
  Country: ES (occurrence: ES)
  Receive Date: 20240704
  Receipt Date: 20240704
  Transmission Date: 20241017
  Serious: Yes (Death)
  Sender: RIGEL PHARMACEUTICALS
  Company Number: ES-RIGEL Pharmaceuticals, INC-20240600070

PATIENT
  Age: 87 Year
  Sex: Male

DRUGS (1)
  1. TAVALISSE [Suspect]
     Active Substance: FOSTAMATINIB
     Indication: Immune thrombocytopenia
     Dosage: UNK

REACTIONS (2)
  - COVID-19 pneumonia [Fatal]
  - Platelet count [Unknown]
